FAERS Safety Report 8535461-X (Version None)
Quarter: 2012Q3

REPORT INFORMATION
  Report Type: 
  Country: None (occurrence: None)
  Receive Date: 20120725
  Receipt Date: 20120711
  Transmission Date: 20120928
  Serious: Yes (Life-Threatening, Hospitalization)
  Sender: FDA-Public Use
  Company Number: GB-RANBAXY-2012R1-57955

PATIENT
  Age: 58 Year
  Sex: Female

DRUGS (7)
  1. BISOPROLOL FUMARATE [Concomitant]
     Indication: PRODUCT USED FOR UNKNOWN INDICATION
     Dosage: 5 MG, QD
     Route: 048
  2. FUROSEMIDE [Concomitant]
     Indication: MITRAL VALVE INCOMPETENCE
     Dosage: 20 MG, QD
     Route: 048
  3. TERBINAFINE HCL [Concomitant]
     Indication: PRODUCT USED FOR UNKNOWN INDICATION
     Dosage: 250 MG, QD
     Route: 048
     Dates: start: 20120405
  4. AMOXICILLIN AND CLAVULANATE POTASSIUM [Suspect]
     Indication: RESPIRATORY TRACT INFECTION
     Dosage: 1 DF, SINGLE
     Route: 042
     Dates: start: 20120519, end: 20120519
  5. ATORVASTATIN [Concomitant]
     Indication: HYPERLIPIDAEMIA
     Dosage: 20 MG, QD
     Route: 048
  6. ASPIRIN [Concomitant]
     Indication: ATRIAL FIBRILLATION
     Dosage: 75 MG, QD
     Route: 048
  7. DIGOXIN [Concomitant]
     Indication: MITRAL VALVE INCOMPETENCE
     Dosage: 250 A?G, QD
     Route: 048

REACTIONS (1)
  - ANAPHYLACTIC REACTION [None]
